FAERS Safety Report 5458222-7 (Version None)
Quarter: 2007Q3

REPORT INFORMATION
  Report Type: 
  Country: None (occurrence: None)
  Receive Date: 20070919
  Receipt Date: 20070319
  Transmission Date: 20080115
  Serious: No
  Sender: FDA-Public Use
  Company Number: US-ASTRAZENECA-2007UW05399

PATIENT
  Age: 57 Year
  Sex: Male

DRUGS (1)
  1. SEROQUEL [Suspect]
     Indication: SCHIZOAFFECTIVE DISORDER
     Dosage: 700-800 MG DAILY PO
     Route: 048
     Dates: start: 19970101

REACTIONS (2)
  - FALL [None]
  - ORTHOSTATIC HYPOTENSION [None]
